FAERS Safety Report 13322094 (Version 1)
Quarter: 2017Q1

REPORT INFORMATION
  Report Type: Spontaneous
  Country: FR (occurrence: FR)
  Receive Date: 20170308
  Receipt Date: 20170308
  Transmission Date: 20170428
  Serious: Yes (Other)
  Sender: FDA-Public Use
  Company Number: PHHY2017FR031932

PATIENT
  Age: 49 Year
  Sex: Male

DRUGS (2)
  1. VORICONAZOLE. [Suspect]
     Active Substance: VORICONAZOLE
     Indication: CYSTIC FIBROSIS
     Dosage: 400 MG, TID
     Route: 065
  2. VORICONAZOLE. [Suspect]
     Active Substance: VORICONAZOLE
     Dosage: 400 MG, BID
     Route: 065

REACTIONS (3)
  - Fluoride increased [Unknown]
  - Exostosis [Recovered/Resolved]
  - Periostitis [Recovered/Resolved]
